FAERS Safety Report 6835626-9 (Version None)
Quarter: 2010Q3

REPORT INFORMATION
  Report Type: 
  Country: None (occurrence: None)
  Receive Date: 20100713
  Receipt Date: 20100705
  Transmission Date: 20110219
  Serious: Yes (Hospitalization)
  Sender: FDA-Public Use
  Company Number: JP-ASTRAZENECA-2010SE30915

PATIENT
  Age: 47 Year
  Sex: Female

DRUGS (7)
  1. DIPRIVAN [Suspect]
     Indication: SEDATION
     Dosage: DOSE UNKNOWN
     Route: 042
  2. FENTANYL CITRATE [Suspect]
     Indication: SEDATION
     Dosage: DOSE UNKNOWN
     Route: 042
  3. DEXMEDETOMIDINE HYDROCHLORIDE [Suspect]
     Indication: SEDATION
     Dosage: DOSE UNKNOWN
     Route: 042
  4. PIPERACILLIN AND TAZOBACTAM [Concomitant]
     Indication: INFECTION
     Dosage: DOSE UNKNOWN
     Route: 065
  5. ADRENAL HORMONE PREPARATIONS [Concomitant]
     Indication: SHOCK
     Dosage: DOSE UNKNOWN
     Route: 065
  6. BETAMETHASONE [Concomitant]
     Indication: RHEUMATOID ARTHRITIS
     Dosage: DOSE UNKNOWN
     Route: 048
  7. POLYGAM S/D [Concomitant]
     Indication: INFECTION
     Dosage: DOSE UNKNOWN
     Route: 065

REACTIONS (1)
  - NEUROLEPTIC MALIGNANT SYNDROME [None]
